FAERS Safety Report 17716259 (Version 1)
Quarter: 2020Q2

REPORT INFORMATION
  Report Type: Spontaneous
  Country: US (occurrence: US)
  Receive Date: 20200428
  Receipt Date: 20200428
  Transmission Date: 20200714
  Serious: No
  Sender: FDA-Public Use
  Company Number: US-SENTYNL THERAPEUTICS, INC.  -2083223

PATIENT
  Age: 60 Year
  Sex: Female

DRUGS (1)
  1. LEVORPHANOL TARTRATE. [Suspect]
     Active Substance: LEVORPHANOL TARTRATE
     Route: 048
     Dates: start: 20180726

REACTIONS (4)
  - Somnolence [Unknown]
  - Constipation [Unknown]
  - Weight increased [Unknown]
  - Sudden onset of sleep [Unknown]
